FAERS Safety Report 8519587-2 (Version None)
Quarter: 2012Q3

REPORT INFORMATION
  Report Type: 
  Country: None (occurrence: None)
  Receive Date: 20120718
  Receipt Date: 20120717
  Transmission Date: 20120928
  Serious: Yes (Other)
  Sender: FDA-Public Use
  Company Number: US-TEVA-348811USA

PATIENT
  Age: 4 Year
  Sex: Female

DRUGS (1)
  1. CEPHALEXIN [Suspect]

REACTIONS (3)
  - AGITATION [None]
  - DISORIENTATION [None]
  - AGGRESSION [None]
